FAERS Safety Report 8319899-1 (Version None)
Quarter: 2012Q2

REPORT INFORMATION
  Report Type: 
  Country: None (occurrence: None)
  Receive Date: 20120427
  Receipt Date: 20120419
  Transmission Date: 20120825
  Serious: Yes (Hospitalization)
  Sender: FDA-Public Use
  Company Number: US-ABBOTT-12P-163-0927310-00

PATIENT
  Age: 25 Year
  Sex: Female

DRUGS (23)
  1. OXYCODONE HCL [Concomitant]
     Indication: PRODUCT USED FOR UNKNOWN INDICATION
     Dosage: 1-2 TABS FOUR TIMES PER DAY
  2. SEROQUEL [Concomitant]
     Indication: OBSESSIVE-COMPULSIVE DISORDER
  3. SEROQUEL [Concomitant]
     Indication: ANXIETY
     Dosage: 100 MG AT NIGHT
  4. CITALOPRAM HYDROBROMIDE [Concomitant]
     Indication: ANXIETY
  5. CITALOPRAM HYDROBROMIDE [Concomitant]
     Indication: BIPOLAR DISORDER
  6. HYDROXYZ [Concomitant]
     Indication: ECZEMA
     Dosage: 1-2 TABS EVERY 8 HOURS AS NEEDED
  7. CEPHALEXIN [Concomitant]
     Indication: ECZEMA
  8. HUMIRA [Suspect]
     Dates: start: 20110501
  9. CITALOPRAM HYDROBROMIDE [Concomitant]
     Indication: OBSESSIVE-COMPULSIVE DISORDER
  10. HYDROXYZ [Concomitant]
     Indication: PRURITUS
  11. ONDANSETRON [Concomitant]
     Indication: PRODUCT USED FOR UNKNOWN INDICATION
     Dosage: RX: TID; HOWEVER, TAKES ONLY 1DAILY PRN
  12. TRAMADOL HCL [Concomitant]
     Indication: PAIN
     Dosage: 1-2 TABS EVERY 6 HOURS AS NEEDEDS
  13. FOLIC ACID [Concomitant]
     Indication: PRODUCT USED FOR UNKNOWN INDICATION
  14. SEROQUEL [Concomitant]
     Indication: BIPOLAR DISORDER
  15. CITALOPRAM HYDROBROMIDE [Concomitant]
     Indication: DEPRESSION
  16. GENERIC FOR SEASONAL BIRTH CONTROL PILL [Concomitant]
     Indication: PRODUCT USED FOR UNKNOWN INDICATION
     Dosage: DAILY 0.15MG/0.03MG TAB
  17. PENTASA [Concomitant]
     Indication: CROHN'S DISEASE
     Dosage: 2 TABS
  18. SEROQUEL [Concomitant]
     Indication: DEPRESSION
  19. PHENERGAN HCL [Concomitant]
     Indication: PRODUCT USED FOR UNKNOWN INDICATION
  20. HUMIRA [Suspect]
     Indication: CROHN'S DISEASE
  21. LORATADINE [Concomitant]
     Indication: SEASONAL ALLERGY
     Dosage: 10 MG DAILY AS NEEDED
  22. HUMIRA [Suspect]
     Indication: CROHN'S DISEASE
     Dates: start: 20070101, end: 20090101
  23. PREDNISONE TAB [Concomitant]
     Indication: ECZEMA
     Dosage: 4 TABS EVERY MORNING

REACTIONS (7)
  - INJECTION SITE VESICLES [None]
  - VOMITING [None]
  - CROHN'S DISEASE [None]
  - DIZZINESS [None]
  - INJECTION SITE PAIN [None]
  - INJECTION SITE HAEMATOMA [None]
  - INJECTION SITE SWELLING [None]
